FAERS Safety Report 17504999 (Version 1)
Quarter: 2020Q3

REPORT INFORMATION
  Report Type: Report from Study
  Country: US (occurrence: US)
  Receive Date: 20200305
  Receipt Date: 20200305
  Transmission Date: 20201104
  Serious: Yes (Hospitalization, Other)
  Sender: FDA-Public Use
  Company Number: NVSC2020US062174

PATIENT
  Age: 59 Year
  Sex: Male
  Weight: 69.1 kg

DRUGS (13)
  1. CYCLOPHOSPHAMIDE. [Suspect]
     Active Substance: CYCLOPHOSPHAMIDE
     Indication: ORAL CAVITY CANCER METASTATIC
     Dosage: 3606 MG, QD
     Route: 042
     Dates: start: 20191015
  2. ASPIRIN. [Concomitant]
     Active Substance: ASPIRIN
     Indication: MYOCARDIAL INFARCTION
     Route: 065
  3. PLAVIX [Concomitant]
     Active Substance: CLOPIDOGREL BISULFATE
     Indication: MYOCARDIAL INFARCTION
     Route: 065
  4. HEPARIN [Concomitant]
     Active Substance: HEPARIN SODIUM
     Indication: MYOCARDIAL INFARCTION
     Route: 065
  5. VANCOMYCIN [Concomitant]
     Active Substance: VANCOMYCIN
     Indication: INFECTION
     Route: 065
  6. PROLEUKIN [Suspect]
     Active Substance: ALDESLEUKIN
     Indication: ORAL CAVITY CANCER METASTATIC
     Dosage: 36.06 IU, ONCE IN 12 HOURS
     Route: 042
     Dates: start: 20191023
  7. DOPAMINE [Concomitant]
     Active Substance: DOPAMINE HYDROCHLORIDE
     Indication: INFECTION
     Route: 065
  8. PROLEUKIN [Suspect]
     Active Substance: ALDESLEUKIN
     Dosage: 36.06 IU, ONCE IN 12 HOURS
     Route: 042
     Dates: start: 20191023
  9. PROLEUKIN [Suspect]
     Active Substance: ALDESLEUKIN
     Dosage: 36.06 IU, QD
     Route: 042
     Dates: start: 20191024
  10. FLUDARABINE PHOSPHATE. [Suspect]
     Active Substance: FLUDARABINE PHOSPHATE
     Indication: ORAL CAVITY CANCER METASTATIC
     Dosage: 34 MG, QD
     Route: 042
     Dates: start: 20191017
  11. FLUDARABINE PHOSPHATE. [Suspect]
     Active Substance: FLUDARABINE PHOSPHATE
     Dosage: THREE DAILY DOSES
     Route: 042
     Dates: start: 20191019
  12. PEMBROLIZUMAB. [Suspect]
     Active Substance: PEMBROLIZUMAB
     Indication: ORAL CAVITY CANCER METASTATIC
     Dosage: 200 MG, THREE TIMES A WEEK
     Route: 042
     Dates: start: 20190904
  13. CYCLOPHOSPHAMIDE. [Suspect]
     Active Substance: CYCLOPHOSPHAMIDE
     Dosage: 3606 MG, QD
     Route: 042
     Dates: start: 20191016

REACTIONS (4)
  - Pulmonary embolism [Recovered/Resolved]
  - Cardiomyopathy [Recovered/Resolved]
  - Troponin increased [Recovered/Resolved]
  - Hypoxia [Recovered/Resolved]

NARRATIVE: CASE EVENT DATE: 20191025
